FAERS Safety Report 8559487 (Version 5)
Quarter: 2015Q4

REPORT INFORMATION
  Report Type: Report from Study
  Country: US (occurrence: US)
  Receive Date: 20120514
  Receipt Date: 20151118
  Transmission Date: 20160305
  Serious: Yes (Hospitalization)
  Sender: FDA-Public Use
  Company Number: US-BIOGENIDEC-2012BI015360

PATIENT
  Age: 65 Year
  Sex: Female

DRUGS (1)
  1. AVONEX [Suspect]
     Active Substance: INTERFERON BETA-1A
     Indication: MULTIPLE SCLEROSIS
     Route: 030
     Dates: start: 20081109

REACTIONS (14)
  - Seizure [Recovered/Resolved]
  - Ruptured cerebral aneurysm [Recovered/Resolved]
  - Diabetes mellitus [Not Recovered/Not Resolved]
  - Amnesia [Not Recovered/Not Resolved]
  - Tenderness [Recovered/Resolved]
  - Cerebrovascular accident [Recovered/Resolved]
  - Incontinence [Not Recovered/Not Resolved]
  - Dizziness [Recovered/Resolved]
  - Intracranial aneurysm [Recovered/Resolved]
  - Umbilical haemorrhage [Recovered/Resolved]
  - Diarrhoea [Recovered/Resolved]
  - Headache [Recovered/Resolved]
  - Vomiting [Recovered/Resolved]
  - Fatigue [Recovered/Resolved]

NARRATIVE: CASE EVENT DATE: 2008
